FAERS Safety Report 18343503 (Version 1)
Quarter: 2020Q4

REPORT INFORMATION
  Report Type: Report from Study
  Country: CA (occurrence: CA)
  Receive Date: 20201005
  Receipt Date: 20201005
  Transmission Date: 20210113
  Serious: Yes (Other)
  Sender: FDA-Public Use
  Company Number: CA-ACCORD-203923

PATIENT
  Sex: Female

DRUGS (13)
  1. METHYLPREDNISOLONE. [Concomitant]
     Active Substance: METHYLPREDNISOLONE
     Indication: PREMEDICATION
     Route: 042
  2. TYLENOL [Concomitant]
     Active Substance: ACETAMINOPHEN
     Indication: PREMEDICATION
     Route: 048
  3. ACETYLSALICYLIC ACID [Concomitant]
     Active Substance: ASPIRIN
     Dosage: NOT SPECIFIED
  4. ATACAND [Concomitant]
     Active Substance: CANDESARTAN CILEXETIL
  5. AZATHIOPRINE. [Concomitant]
     Active Substance: AZATHIOPRINE
     Dosage: NOT SPECIFIED
  6. LIPITOR [Concomitant]
     Active Substance: ATORVASTATIN CALCIUM
  7. BENADRYL [Concomitant]
     Active Substance: DIPHENHYDRAMINE HYDROCHLORIDE
     Indication: PREMEDICATION
     Dosage: NOT SPECIFIED
     Route: 048
  8. SYNTHROID [Concomitant]
     Active Substance: LEVOTHYROXINE SODIUM
     Dosage: NOT SPECIFIED
  9. PREDNISONE. [Concomitant]
     Active Substance: PREDNISONE
     Dosage: NOT SPECIFIED
  10. MYCOPHENOLIC ACID. [Suspect]
     Active Substance: MYCOPHENOLIC ACID
     Indication: SJOGREN^S SYNDROME
     Route: 065
  11. PANTOLOC [Concomitant]
     Active Substance: PANTOPRAZOLE SODIUM
  12. RITUXIMAB. [Suspect]
     Active Substance: RITUXIMAB
     Indication: GLOMERULONEPHRITIS
     Route: 042
  13. SULFATRIM [Concomitant]
     Active Substance: SULFAMETHOXAZOLE\TRIMETHOPRIM

REACTIONS (3)
  - Autoimmune hepatitis [Unknown]
  - Urinary tract infection [Unknown]
  - Off label use [Unknown]
